FAERS Safety Report 9735241 (Version 2)
Quarter: 2013Q4

REPORT INFORMATION
  Report Type: Spontaneous
  Country: FR (occurrence: FR)
  Receive Date: 20131206
  Receipt Date: 20131227
  Transmission Date: 20140711
  Serious: Yes (Other)
  Sender: FDA-Public Use
  Company Number: FR-ASTRAZENECA-2013SE87838

PATIENT
  Age: 48 Year
  Sex: Male
  Weight: 67 kg

DRUGS (5)
  1. XEROQUEL [Suspect]
     Indication: SCHIZOPHRENIA
     Route: 048
     Dates: start: 20111222, end: 20120102
  2. XEROQUEL [Suspect]
     Indication: SCHIZOPHRENIA
     Route: 048
     Dates: start: 20120103, end: 2013
  3. XEROQUEL [Suspect]
     Indication: SCHIZOPHRENIA
     Route: 048
     Dates: start: 2013
  4. EFFEXOR [Concomitant]
     Indication: DEPRESSION
     Route: 048
     Dates: start: 20111103
  5. SERESTA [Concomitant]
     Indication: ANXIETY
     Route: 048
     Dates: start: 20111222

REACTIONS (2)
  - Tooth injury [Recovered/Resolved with Sequelae]
  - Dry mouth [Unknown]
